FAERS Safety Report 8951773 (Version 1)
Quarter: 2012Q4

REPORT INFORMATION
  Report Type: 
  Country: US (occurrence: US)
  Receive Date: 20121204
  Receipt Date: 20121204
  Transmission Date: 20130627
  Serious: No
  Sender: FDA-Public Use
  Company Number: US-AMGEN-USASP2012068915

PATIENT
  Sex: Female

DRUGS (3)
  1. ENBREL [Suspect]
     Indication: PSORIATIC ARTHROPATHY
     Dosage: 50 mg, qwk
     Dates: start: 20070501
  2. METHOTREXATE [Concomitant]
     Dosage: UNK
  3. ACTONEL [Concomitant]
     Dosage: UNK

REACTIONS (1)
  - Stomatitis [Recovered/Resolved]
